FAERS Safety Report 6914034-6 (Version None)
Quarter: 2010Q3

REPORT INFORMATION
  Report Type: 
  Country: None (occurrence: None)
  Receive Date: 20100809
  Receipt Date: 20100727
  Transmission Date: 20110219
  Serious: Yes (Other)
  Sender: FDA-Public Use
  Company Number: PHHY2010BR50120

PATIENT
  Age: 48 Year
  Sex: Female
  Weight: 59 kg

DRUGS (3)
  1. COMTAN [Suspect]
     Indication: PARKINSON'S DISEASE
     Dosage: 1 DF, TID
     Route: 048
     Dates: start: 20091201
  2. PROLOPA [Concomitant]
     Indication: PARKINSON'S DISEASE
     Dosage: (LEVODOPA/BENSERAZIDE): 4 TABLETS DAILY: 0.5 TABLET EVERY 3 HOURS
     Route: 048
     Dates: start: 20030101
  3. NEOSALDINA [Concomitant]
     Indication: HEADACHE
     Dosage: 40 DROPS DAILY

REACTIONS (7)
  - ATHETOSIS [None]
  - CHOREA [None]
  - DIAPHRAGMATIC DISORDER [None]
  - DRUG INEFFECTIVE [None]
  - EXPIRED DRUG ADMINISTERED [None]
  - HEADACHE [None]
  - WEIGHT DECREASED [None]
